FAERS Safety Report 7401294-0 (Version None)
Quarter: 2011Q2

REPORT INFORMATION
  Report Type: 
  Country: None (occurrence: None)
  Receive Date: 20110407
  Receipt Date: 20110406
  Transmission Date: 20111010
  Serious: Yes (Other)
  Sender: FDA-Public Use
  Company Number: US-GILEAD-2011-0038258

PATIENT
  Age: 40 Year
  Sex: Female

DRUGS (1)
  1. TRUVADA [Suspect]
     Indication: HIV INFECTION

REACTIONS (1)
  - ABORTION SPONTANEOUS [None]
